FAERS Safety Report 8566982 (Version 2)
Quarter: 2013Q2

REPORT INFORMATION
  Report Type: Spontaneous
  Country: IT (occurrence: IT)
  Receive Date: 20120517
  Receipt Date: 20130411
  Transmission Date: 20140414
  Serious: Yes (Other)
  Sender: FDA-Public Use
  Company Number: PHHY2012IT041038

PATIENT
  Sex: Male

DRUGS (9)
  1. VINCRISTINE [Suspect]
     Indication: EWING^S SARCOMA
     Dosage: 1.5 MG/M2, UNK
  2. METHOTREXATE [Interacting]
     Indication: BONE SARCOMA
  3. ETOPOSIDE [Interacting]
     Indication: EWING^S SARCOMA
     Dosage: 150 MG/M2, UNK
  4. CYCLOPHOSPHAMIDE [Concomitant]
     Indication: EWING^S SARCOMA
  5. DOXORUBICIN [Concomitant]
     Indication: EWING^S SARCOMA
     Dosage: 40 MG/M2
  6. IFOSFAMIDE [Concomitant]
     Indication: EWING^S SARCOMA
  7. CISPLATIN [Concomitant]
     Indication: BONE SARCOMA
     Dosage: 120 MG/M2, UNK
  8. CIPROFLOXACIN [Concomitant]
  9. ANAESTHETICS [Concomitant]

REACTIONS (10)
  - Anaphylactic reaction [Recovered/Resolved]
  - Nausea [Recovered/Resolved]
  - Vomiting [Recovered/Resolved]
  - Agitation [Recovered/Resolved]
  - Oxygen saturation decreased [Recovered/Resolved]
  - Tachycardia [Recovered/Resolved]
  - Urticaria [Recovered/Resolved]
  - Angioedema [Recovered/Resolved]
  - Blood immunoglobulin E increased [Recovered/Resolved]
  - Drug interaction [Recovered/Resolved]
